FAERS Safety Report 12750970 (Version 1)
Quarter: 2016Q3

REPORT INFORMATION
  Report Type: Report from Study
  Country: BR (occurrence: BR)
  Receive Date: 20160915
  Receipt Date: 20160915
  Transmission Date: 20161109
  Serious: Yes (Hospitalization)
  Sender: FDA-Public Use
  Company Number: PHHY2016BR126320

PATIENT
  Sex: Male
  Weight: 16.4 kg

DRUGS (2)
  1. ILARIS [Suspect]
     Active Substance: CANAKINUMAB
     Dosage: UNK
     Route: 058
     Dates: start: 201608
  2. ILARIS [Suspect]
     Active Substance: CANAKINUMAB
     Indication: CHRONIC INFANTILE NEUROLOGICAL CUTANEOUS AND ARTICULAR SYNDROME
     Dosage: 150 MG, ONCE EVERY 8 WEEKS
     Route: 058
     Dates: start: 201501

REACTIONS (7)
  - Blood urine present [Recovered/Resolved]
  - Decreased appetite [Unknown]
  - Chronic infantile neurological cutaneous and articular syndrome [Unknown]
  - Abasia [Unknown]
  - Joint swelling [Unknown]
  - Pain [Unknown]
  - Condition aggravated [Unknown]
